FAERS Safety Report 10196515 (Version 2)
Quarter: 2014Q2

REPORT INFORMATION
  Report Type: Spontaneous
  Country: US (occurrence: None)
  Receive Date: 20140522
  Receipt Date: 20140530
  Transmission Date: 20141212
  Serious: Yes (Hospitalization)
  Sender: FDA-Public Use
  Company Number: CIO14034837

PATIENT
  Age: 59 Year
  Sex: Male
  Weight: 74.8 kg

DRUGS (4)
  1. ZZZQUIL NIGHTIME SLEEP-AID, WARMING BERRY FLAVOR [Suspect]
     Indication: INSOMNIA
     Dosage: ONE OUNCE
     Route: 048
     Dates: start: 20140510, end: 20140511
  2. ANALGESICS [Concomitant]
  3. ICY HOT [Concomitant]
  4. LIDOCAINE [Concomitant]

REACTIONS (9)
  - Somnolence [None]
  - Pollakiuria [None]
  - Urinary incontinence [None]
  - Confusional state [None]
  - Inappropriate schedule of drug administration [None]
  - Intentional overdose [None]
  - Somnolence [None]
  - Back pain [None]
  - Decreased appetite [None]
